FAERS Safety Report 23851543 (Version 1)
Quarter: 2024Q2

REPORT INFORMATION
  Report Type: Report from Study
  Country: US (occurrence: US)
  Receive Date: 20240514
  Receipt Date: 20240514
  Transmission Date: 20240716
  Serious: No
  Sender: FDA-Public Use
  Company Number: US-ACADIA PHARMACEUTICALS INC.-ACA-2024-PIM-002024

PATIENT
  Sex: Female

DRUGS (1)
  1. NUPLAZID [Suspect]
     Active Substance: PIMAVANSERIN TARTRATE
     Indication: Vascular parkinsonism
     Dosage: 34 MILLIGRAM, QD
     Route: 048
     Dates: start: 202403

REACTIONS (2)
  - Palpitations [Unknown]
  - Off label use [Unknown]
